FAERS Safety Report 5444295-4 (Version None)
Quarter: 2007Q3

REPORT INFORMATION
  Report Type: 
  Country: None (occurrence: None)
  Receive Date: 20070906
  Receipt Date: 20070828
  Transmission Date: 20080115
  Serious: Yes (Hospitalization)
  Sender: FDA-Public Use
  Company Number: FR-BAXTER-2007BH006310

PATIENT
  Age: 79 Year
  Sex: Male

DRUGS (5)
  1. DIANEAL PD-1 [Suspect]
     Indication: PERITONEAL DIALYSIS
     Route: 033
     Dates: start: 20070412
  2. CORDARONE [Suspect]
     Indication: DRUG USE FOR UNKNOWN INDICATION
     Dosage: DOSE UNIT:UNKNOWN
     Route: 065
     Dates: end: 20070701
  3. EPOETIN NOS [Concomitant]
  4. LASIX [Concomitant]
  5. PREVISCAN [Concomitant]

REACTIONS (1)
  - DRUG ERUPTION [None]
